FAERS Safety Report 9243455 (Version 2)
Quarter: 2013Q3

REPORT INFORMATION
  Report Type: Spontaneous
  Country: US (occurrence: US)
  Receive Date: 20130422
  Receipt Date: 20130708
  Transmission Date: 20140515
  Serious: Yes (Other)
  Sender: FDA-Public Use
  Company Number: US-AMGEN-USASP2013026796

PATIENT
  Age: 45 Year
  Sex: Female
  Weight: 89.34 kg

DRUGS (5)
  1. ENBREL [Suspect]
     Indication: JUVENILE IDIOPATHIC ARTHRITIS
     Dosage: 5 MG, UNK
     Route: 065
     Dates: start: 19980101
  2. PREDNISONE [Concomitant]
  3. METHOTREXATE [Concomitant]
  4. FORTEO [Concomitant]
  5. VICODIN [Concomitant]
     Dosage: UNK

REACTIONS (21)
  - Dementia [Not Recovered/Not Resolved]
  - Visual impairment [Not Recovered/Not Resolved]
  - Pain in extremity [Unknown]
  - Local swelling [Unknown]
  - Feeling abnormal [Unknown]
  - Intervertebral disc disorder [Unknown]
  - Arthralgia [Unknown]
  - Musculoskeletal stiffness [Unknown]
  - Insomnia [Unknown]
  - Sjogren^s syndrome [Unknown]
  - Dysphagia [Unknown]
  - Chest discomfort [Unknown]
  - Dyspepsia [Unknown]
  - Nephrolithiasis [Unknown]
  - Hypoaesthesia [Unknown]
  - Mobility decreased [Unknown]
  - Neuropathy peripheral [Unknown]
  - Sensory loss [Unknown]
  - Bone disorder [Unknown]
  - Paraesthesia [Recovered/Resolved]
  - Lymphadenopathy [Unknown]
